FAERS Safety Report 7291938-9 (Version None)
Quarter: 2011Q1

REPORT INFORMATION
  Report Type: 
  Country: None (occurrence: None)
  Receive Date: 20110214
  Receipt Date: 20110210
  Transmission Date: 20110831
  Serious: Yes (Hospitalization)
  Sender: FDA-Public Use
  Company Number: ES-MERCK-1101ESP00032

PATIENT
  Age: 89 Year
  Sex: Female

DRUGS (9)
  1. ACENOCOUMAROL [Suspect]
     Indication: ATRIAL FIBRILLATION
     Route: 048
     Dates: start: 20060101
  2. LORMETAZEPAM [Concomitant]
     Route: 065
  3. ENALAPRIL MALEATE [Concomitant]
     Route: 065
  4. METILDIGOXIN [Concomitant]
     Route: 065
  5. FOSAMAX [Suspect]
     Indication: OSTEOPOROSIS
     Route: 048
     Dates: start: 20100811, end: 20101005
  6. CHOLECALCIFEROL [Concomitant]
     Route: 065
  7. CALCIUM (UNSPECIFIED) [Concomitant]
     Route: 065
  8. CITALOPRAM [Concomitant]
     Route: 065
  9. OMEPRAZOLE [Concomitant]
     Route: 065

REACTIONS (4)
  - MELAENA [None]
  - OESOPHAGITIS [None]
  - HAEMATEMESIS [None]
  - DRUG INTERACTION [None]
